FAERS Safety Report 4559442-6 (Version None)
Quarter: 2005Q1

REPORT INFORMATION
  Report Type: 
  Country: None (occurrence: None)
  Receive Date: 20050119
  Receipt Date: 20050107
  Transmission Date: 20050727
  Serious: Yes (Death, Hospitalization)
  Sender: FDA-Public Use
  Company Number: 211293

PATIENT
  Age: 75 Year
  Sex: Male

DRUGS (5)
  1. RITUXIMAB (RITUXIMAB) CONC FOR SOLUTION FOR INFUSION [Suspect]
     Indication: CHRONIC LYMPHOCYTIC LEUKAEMIA
     Dosage: 500 MG/M2, Q28D, INTRAVENOUS
     Route: 042
     Dates: start: 20040609, end: 20041027
  2. FLUDARABINE PHOSPHATE [Suspect]
     Indication: CHRONIC LYMPHOCYTIC LEUKAEMIA
     Dosage: 25 MG/M2, Q28D, INTRAVENOUS
     Route: 042
     Dates: start: 20040610, end: 20041029
  3. CYCLOPHOSPHAMIDE [Suspect]
     Indication: CHRONIC LYMPHOCYTIC LEUKAEMIA
     Dosage: 250 MG/M2, Q28D, INTRAVENOUS
     Route: 042
     Dates: start: 20040610, end: 20041029
  4. ACYCLOVIR [Concomitant]
  5. SULFAMETHOXAZOLE + TRIMETHOPRIM [Concomitant]

REACTIONS (19)
  - ALANINE AMINOTRANSFERASE INCREASED [None]
  - ANGIOPATHY [None]
  - APPENDIX DISORDER [None]
  - ASPARTATE AMINOTRANSFERASE INCREASED [None]
  - BLOOD ALKALINE PHOSPHATASE INCREASED [None]
  - CEREBRAL INFARCTION [None]
  - COLON CANCER [None]
  - ENDOCARDITIS [None]
  - GAMMA-GLUTAMYLTRANSFERASE INCREASED [None]
  - HEPATIC FUNCTION ABNORMAL [None]
  - INFECTION [None]
  - LIVER ABSCESS [None]
  - METASTATIC NEOPLASM [None]
  - RENAL DISORDER [None]
  - SEPSIS [None]
  - SPLEEN DISORDER [None]
  - THROMBOCYTOPENIA [None]
  - THROMBOTIC STROKE [None]
  - VISUAL DISTURBANCE [None]
